FAERS Safety Report 11043152 (Version 1)
Quarter: 2015Q2

REPORT INFORMATION
  Report Type: Spontaneous
  Country: US (occurrence: None)
  Receive Date: 20150416
  Receipt Date: 20150416
  Transmission Date: 20150821
  Serious: No
  Sender: FDA-Public Use
  Company Number: None

PATIENT
  Age: 40 Year
  Sex: Female
  Weight: 68.04 kg

DRUGS (4)
  1. CHANTIX [Suspect]
     Active Substance: VARENICLINE TARTRATE
     Indication: SMOKING CESSATION THERAPY
     Route: 048
  2. ASPIRIN. [Concomitant]
     Active Substance: ASPIRIN
  3. STELARA [Concomitant]
     Active Substance: USTEKINUMAB
  4. TICAGRELOR [Concomitant]
     Active Substance: TICAGRELOR

REACTIONS (4)
  - Aggression [None]
  - Anger [None]
  - Malaise [None]
  - Urinary tract infection [None]

NARRATIVE: CASE EVENT DATE: 20150415
